FAERS Safety Report 17654837 (Version 1)
Quarter: 2020Q2

REPORT INFORMATION
  Report Type: Spontaneous
  Country: DE (occurrence: DE)
  Receive Date: 20200410
  Receipt Date: 20200410
  Transmission Date: 20200713
  Serious: Yes (Other)
  Sender: FDA-Public Use
  Company Number: DE-PFIZER INC-2020142989

PATIENT
  Age: 7 Decade
  Sex: Female

DRUGS (1)
  1. IBRANCE [Suspect]
     Active Substance: PALBOCICLIB
     Dosage: 125 MG, UNK
     Dates: end: 202003

REACTIONS (12)
  - Epistaxis [Unknown]
  - Asthenia [Unknown]
  - Haemoglobin decreased [Unknown]
  - Nausea [Unknown]
  - Oral herpes [Unknown]
  - White blood cell count decreased [Unknown]
  - Haematochezia [Unknown]
  - Dyspnoea [Unknown]
  - Nail cuticle fissure [Unknown]
  - Fatigue [Unknown]
  - Alopecia [Unknown]
  - Red blood cell count decreased [Unknown]

NARRATIVE: CASE EVENT DATE: 2020
